FAERS Safety Report 24598130 (Version 3)
Quarter: 2025Q3

REPORT INFORMATION
  Report Type: Spontaneous
  Country: US (occurrence: US)
  Receive Date: 20241110
  Receipt Date: 20250801
  Transmission Date: 20251021
  Serious: No
  Sender: SANOFI AVENTIS
  Company Number: US-SA-2024SA307825

PATIENT
  Age: 86 Year
  Sex: Female

DRUGS (1)
  1. DUPILUMAB [Suspect]
     Active Substance: DUPILUMAB
     Indication: Eosinophilic oesophagitis
     Dosage: 300 MG, QW
     Route: 058

REACTIONS (12)
  - Asthenia [Not Recovered/Not Resolved]
  - Fatigue [Recovering/Resolving]
  - Dehydration [Recovering/Resolving]
  - Gait disturbance [Recovering/Resolving]
  - Muscle spasms [Unknown]
  - Tremor [Unknown]
  - Muscular weakness [Unknown]
  - Eye pain [Unknown]
  - Vision blurred [Unknown]
  - Pain in extremity [Not Recovered/Not Resolved]
  - Myalgia [Unknown]
  - Headache [Unknown]

NARRATIVE: CASE EVENT DATE: 20241001
